FAERS Safety Report 5133926-4 (Version None)
Quarter: 2006Q4

REPORT INFORMATION
  Report Type: 
  Country: None (occurrence: None)
  Receive Date: 20061019
  Receipt Date: 20061011
  Transmission Date: 20070319
  Serious: Yes (Death, Hospitalization)
  Sender: FDA-Public Use
  Company Number: B0442266A

PATIENT
  Age: 69 Year
  Sex: Male

DRUGS (5)
  1. VALTREX [Suspect]
     Indication: HERPES ZOSTER
     Dosage: 3000 MG
     Dates: start: 20030701, end: 20030701
  2. GEMCITABINE [Concomitant]
  3. DOCETAXEL [Concomitant]
  4. CARBOPLATIN [Concomitant]
  5. RADIOTHERAPY [Concomitant]

REACTIONS (2)
  - HEPATIC FUNCTION ABNORMAL [None]
  - HEPATITIS ACUTE [None]
